FAERS Safety Report 14367924 (Version 2)
Quarter: 2018Q1

REPORT INFORMATION
  Report Type: Spontaneous
  Country: US (occurrence: US)
  Receive Date: 20180109
  Receipt Date: 20180111
  Transmission Date: 20180509
  Serious: Yes (Hospitalization)
  Sender: FDA-Public Use
  Company Number: US-JNJFOC-20180108783

PATIENT
  Age: 46 Year
  Sex: Male

DRUGS (3)
  1. IMBRUVICA [Suspect]
     Active Substance: IBRUTINIB
     Indication: CHRONIC LYMPHOCYTIC LEUKAEMIA
     Route: 048
     Dates: start: 20160808, end: 20170814
  2. DAILY MULTIVITAMIN [Concomitant]
     Active Substance: VITAMINS
  3. OBINUTUZUMAB. [Suspect]
     Active Substance: OBINUTUZUMAB
     Indication: CHRONIC LYMPHOCYTIC LEUKAEMIA
     Route: 042
     Dates: start: 20160711, end: 20170130

REACTIONS (2)
  - Pyrexia [Recovered/Resolved]
  - Coronary artery occlusion [Not Recovered/Not Resolved]

NARRATIVE: CASE EVENT DATE: 201711
